FAERS Safety Report 4545125-5 (Version None)
Quarter: 2005Q1

REPORT INFORMATION
  Report Type: 
  Country: None (occurrence: None)
  Receive Date: 20050103
  Receipt Date: 20041227
  Transmission Date: 20050727
  Serious: Yes (Other)
  Sender: FDA-Public Use
  Company Number: 2004109251

PATIENT
  Age: 66 Year
  Sex: Male

DRUGS (5)
  1. LIPITOR [Suspect]
     Indication: HYPERCHOLESTEROLAEMIA
     Dosage: 40 MG (40 MG, 1 IN 1 D), ORAL
     Route: 048
     Dates: start: 19990101, end: 20040415
  2. LEVOTHYROXINE SODIUM [Concomitant]
  3. MONOPLUS (FOSINOPRIL, HYDROCHLOROTHIAZIDE) [Concomitant]
  4. METOPROLOL TARTRATE [Concomitant]
  5. ASPIRIN [Concomitant]

REACTIONS (5)
  - FEELING ABNORMAL [None]
  - MUSCLE SPASMS [None]
  - NERVE CONDUCTION STUDIES ABNORMAL [None]
  - POLYNEUROPATHY [None]
  - SENSORY DISTURBANCE [None]
